FAERS Safety Report 6029814-1 (Version None)
Quarter: 2009Q1

REPORT INFORMATION
  Report Type: 
  Country: None (occurrence: None)
  Receive Date: 20090106
  Receipt Date: 20090106
  Transmission Date: 20090719
  Serious: Yes (Hospitalization)
  Sender: FDA-Public Use
  Company Number: None

PATIENT
  Age: 7 Year
  Sex: Female
  Weight: 17.8 kg

DRUGS (2)
  1. GAMMAGARD [Suspect]
     Indication: IMMUNODEFICIENCY
     Dosage: 12 GRAMS PRN IV
     Route: 042
     Dates: start: 20081103, end: 20081103
  2. GAMMAGARD [Suspect]
     Indication: IMMUNODEFICIENCY
     Dosage: 12 GRAMS PRN IV
     Route: 042
     Dates: start: 20081121, end: 20081121

REACTIONS (3)
  - JAUNDICE [None]
  - LIVER FUNCTION TEST ABNORMAL [None]
  - PRODUCT QUALITY ISSUE [None]
